FAERS Safety Report 9187566 (Version 3)
Quarter: 2013Q2

REPORT INFORMATION
  Report Type: Spontaneous
  Country: VE (occurrence: VE)
  Receive Date: 20130325
  Receipt Date: 20130514
  Transmission Date: 20140414
  Serious: Yes (Other)
  Sender: FDA-Public Use
  Company Number: VE-PFIZER INC-2013090268

PATIENT
  Sex: Female

DRUGS (1)
  1. ZOLOFT [Suspect]
     Indication: SEDATIVE THERAPY
     Dosage: 50 MG, 1X/DAY
     Route: 048
     Dates: start: 2008, end: 201303

REACTIONS (4)
  - Abscess oral [Recovered/Resolved]
  - Epilepsy [Recovered/Resolved]
  - Cellulitis [Recovered/Resolved]
  - Off label use [Recovered/Resolved]
